FAERS Safety Report 25388040 (Version 1)
Quarter: 2025Q2

REPORT INFORMATION
  Report Type: Report from Study
  Country: US (occurrence: US)
  Receive Date: 20250603
  Receipt Date: 20250603
  Transmission Date: 20250716
  Serious: Yes (Hospitalization)
  Sender: ACADIA PHARMACEUTICALS
  Company Number: US-ACADIA PHARMACEUTICALS INC.-ACA-2025-PIM-006510

PATIENT
  Age: 89 Year
  Sex: Male

DRUGS (20)
  1. NUPLAZID [Suspect]
     Active Substance: PIMAVANSERIN TARTRATE
     Indication: Parkinson^s disease psychosis
     Dosage: 34 MILLIGRAM, QD
     Route: 048
     Dates: start: 20240604
  2. DIVALPROEX SODIUM [Concomitant]
     Active Substance: DIVALPROEX SODIUM
  3. AMLODIPINE [Concomitant]
     Active Substance: AMLODIPINE BESYLATE
  4. MONTELUKAST [Concomitant]
     Active Substance: MONTELUKAST
  5. WELLBUTRIN XL [Concomitant]
     Active Substance: BUPROPION HYDROCHLORIDE
  6. ONDANSETRON HYDROCHLORIDE [Concomitant]
     Active Substance: ONDANSETRON HYDROCHLORIDE
  7. LEXAPRO [Concomitant]
     Active Substance: ESCITALOPRAM OXALATE
  8. ARICEPT [Concomitant]
     Active Substance: DONEPEZIL HYDROCHLORIDE
  9. MEMANTINE [Concomitant]
     Active Substance: MEMANTINE
  10. ADVIL [Concomitant]
     Active Substance: IBUPROFEN
  11. ALBUTEROL [Concomitant]
     Active Substance: ALBUTEROL
  12. VITAMIN D2 [Concomitant]
     Active Substance: ERGOCALCIFEROL
  13. BUDESONIDE [Concomitant]
     Active Substance: BUDESONIDE
  14. FORMOTEROL [Concomitant]
     Active Substance: FORMOTEROL
  15. GABAPENTIN [Concomitant]
     Active Substance: GABAPENTIN
  16. CREXONT [Concomitant]
     Active Substance: CARBIDOPA\LEVODOPA
  17. QUETIAPINE [Concomitant]
     Active Substance: QUETIAPINE
  18. XARELTO [Concomitant]
     Active Substance: RIVAROXABAN
  19. LORAZEPAM [Concomitant]
     Active Substance: LORAZEPAM
  20. MORPHINE SULFATE [Concomitant]
     Active Substance: MORPHINE SULFATE

REACTIONS (2)
  - Malaise [Recovered/Resolved]
  - Oxygen saturation decreased [Recovered/Resolved]

NARRATIVE: CASE EVENT DATE: 20250514
